FAERS Safety Report 20538570 (Version 1)
Quarter: 2022Q1

REPORT INFORMATION
  Report Type: Spontaneous
  Country: US (occurrence: None)
  Receive Date: 20220302
  Receipt Date: 20220302
  Transmission Date: 20220423
  Serious: Yes (Hospitalization)
  Sender: FDA-Public Use
  Company Number: None

PATIENT
  Age: 19 Year
  Sex: Male

DRUGS (2)
  1. BENLYSTA [Suspect]
     Active Substance: BELIMUMAB
     Indication: Systemic lupus erythematosus
     Dosage: INJECT 1 PEN UNDER THE SKIN (SUBCUTANEOUS  INJECTION) EVERY 7 DAYS
     Route: 058
     Dates: start: 20210122
  2. ACETAMINOPHE TAB 325MG [Concomitant]

REACTIONS (2)
  - Systemic lupus erythematosus [None]
  - Condition aggravated [None]

NARRATIVE: CASE EVENT DATE: 20220221
